FAERS Safety Report 9251875 (Version 2)
Quarter: 2013Q2

REPORT INFORMATION
  Report Type: Report from Study
  Country: US (occurrence: US)
  Receive Date: 20130424
  Receipt Date: 20130506
  Transmission Date: 20140414
  Serious: Yes (Hospitalization)
  Sender: FDA-Public Use
  Company Number: US-ACTELION-A-NJ2013-82402

PATIENT
  Age: 61 Year
  Sex: Female

DRUGS (9)
  1. VENTAVIS [Suspect]
     Indication: PULMONARY ARTERIAL HYPERTENSION
     Dosage: UNK
     Route: 055
     Dates: start: 20090105
  2. VENTAVIS [Suspect]
     Dosage: 5 UNK, 3-9XDAILY
     Route: 055
  3. REVATIO [Concomitant]
     Dosage: 20 MG, BID
     Route: 048
  4. LISINOPRIL [Concomitant]
     Dosage: 20 MG, UNK
     Route: 048
  5. NEXIUM [Concomitant]
     Dosage: 40 MG, UNK
     Route: 048
  6. HEPARIN [Concomitant]
     Dosage: 5000 U, TID
     Route: 058
  7. PLAQUENIL [Concomitant]
     Dosage: 200 MG, UNK
     Route: 048
  8. MELATONIN [Concomitant]
  9. CALCIUM CITRATE + D [Concomitant]
     Dosage: 1 UNK, QD
     Route: 048

REACTIONS (7)
  - Gastroenteritis viral [Recovering/Resolving]
  - Vomiting [Recovering/Resolving]
  - Diarrhoea [Recovering/Resolving]
  - Nausea [Recovering/Resolving]
  - Dehydration [Recovering/Resolving]
  - Metabolic acidosis [Unknown]
  - Chest pain [Unknown]
